FAERS Safety Report 9797979 (Version 1)
Quarter: 2014Q1

REPORT INFORMATION
  Report Type: Spontaneous
  Country: US (occurrence: None)
  Receive Date: 20140102
  Receipt Date: 20140102
  Transmission Date: 20141002
  Serious: Yes (Hospitalization)
  Sender: FDA-Public Use
  Company Number: None

PATIENT
  Age: 27 Year
  Sex: Male
  Weight: 72.3 kg

DRUGS (2)
  1. CEFTRIAXONE [Suspect]
     Indication: INFECTION
     Route: 030
     Dates: start: 20130923, end: 20130923
  2. AZITHROMYCIN [Suspect]
     Indication: INFECTION
     Dosage: 2 TAB, ONCE, PO
     Route: 048
     Dates: start: 20130923, end: 20130923

REACTIONS (3)
  - Rash [None]
  - Dyspnoea [None]
  - Urticaria [None]
